FAERS Safety Report 5623240-2 (Version None)
Quarter: 2008Q1

REPORT INFORMATION
  Report Type: 
  Country: None (occurrence: None)
  Receive Date: 20080212
  Receipt Date: 20080204
  Transmission Date: 20080703
  Serious: Yes (Other)
  Sender: FDA-Public Use
  Company Number: CA-JNJFOC-20071104804

PATIENT
  Sex: Female
  Weight: 41.5 kg

DRUGS (3)
  1. REMICADE [Suspect]
     Indication: RHEUMATOID ARTHRITIS
     Route: 042
  2. PREVACID [Concomitant]
     Route: 048
  3. HEPARIN [Concomitant]
     Route: 058

REACTIONS (3)
  - FACE OEDEMA [None]
  - FACIAL PAIN [None]
  - LACRIMATION INCREASED [None]
